FAERS Safety Report 23368046 (Version 1)
Quarter: 2024Q1

REPORT INFORMATION
  Report Type: Spontaneous
  Country: RU (occurrence: RU)
  Receive Date: 20240105
  Receipt Date: 20240105
  Transmission Date: 20240410
  Serious: Yes (Other)
  Sender: FDA-Public Use
  Company Number: RU-MEN-2023-092265

PATIENT
  Age: 67 Year
  Sex: Male
  Weight: 102 kg

DRUGS (7)
  1. RANEXA [Suspect]
     Active Substance: RANOLAZINE
     Indication: Angina pectoris
     Dosage: 1000 MG, QD
     Route: 048
     Dates: start: 20231105, end: 20231112
  2. CARDIOMAGNYL [Concomitant]
     Active Substance: ASPIRIN\MAGNESIUM HYDROXIDE
     Indication: Anticoagulant therapy
     Route: 048
     Dates: start: 20231105
  3. SACUBITRIL\VALSARTAN [Concomitant]
     Active Substance: SACUBITRIL\VALSARTAN
     Indication: Hypertension
     Dosage: 50 MG, QD
     Route: 048
     Dates: start: 20231105, end: 20231112
  4. BISOPROLOL FUMARATE [Concomitant]
     Active Substance: BISOPROLOL FUMARATE
     Indication: Myocardial ischaemia
     Route: 048
     Dates: start: 20231105
  5. Coraxan [Concomitant]
     Indication: Angina pectoris
     Dosage: 10 MG, QD
     Route: 048
     Dates: start: 20231105
  6. BRILINTA [Concomitant]
     Active Substance: TICAGRELOR
     Indication: Arteriosclerosis coronary artery
     Dosage: 180 MG, QD
     Route: 048
     Dates: start: 20231105
  7. Forsiga [Concomitant]
     Indication: Cardiac failure chronic
     Route: 048
     Dates: start: 20231105

REACTIONS (1)
  - Blood pressure decreased [Not Recovered/Not Resolved]

NARRATIVE: CASE EVENT DATE: 20231105
